FAERS Safety Report 8548022 (Version 5)
Quarter: 2013Q1

REPORT INFORMATION
  Report Type: Spontaneous
  Country: US (occurrence: US)
  Receive Date: 20120504
  Receipt Date: 20130111
  Transmission Date: 20140127
  Serious: Yes (Hospitalization, Disabling, Other)
  Sender: FDA-Public Use
  Company Number: US-009507513-1205USA00037

PATIENT
  Sex: 0

DRUGS (7)
  1. FOSAMAX [Suspect]
     Indication: OSTEOPOROSIS
     Dosage: 70 MG, UNK
     Route: 048
     Dates: end: 200801
  2. FOSAMAX PLUS D [Suspect]
     Indication: OSTEOPOROSIS
     Dosage: 70 MG, UNK
     Route: 048
     Dates: start: 20070102, end: 200808
  3. BONIVA [Suspect]
     Indication: OSTEOPOROSIS
     Dosage: 150 MG, UNK
     Route: 048
     Dates: start: 20080804, end: 200901
  4. MAGNESIUM (UNSPECIFIED) [Concomitant]
     Dosage: 250 MG, UNK
  5. CALCIUM (UNSPECIFIED) (+) VITAMIN D (UNSPECIFIED) [Concomitant]
     Dosage: UNK
     Dates: start: 2002
  6. CLARITIN-D [Concomitant]
     Indication: HYPERSENSITIVITY
  7. KEFLEX [Concomitant]

REACTIONS (69)
  - Osteoporosis [Unknown]
  - Stress fracture [Unknown]
  - Femur fracture [Unknown]
  - Low turnover osteopathy [Unknown]
  - Lip injury [Unknown]
  - Facial bones fracture [Unknown]
  - Nasal oedema [Unknown]
  - Gastroenteritis [Recovered/Resolved]
  - Rectal fistula repair [Unknown]
  - Tonsillectomy [Unknown]
  - Lymphadenectomy [Unknown]
  - Anaemia postoperative [Unknown]
  - Femur fracture [Unknown]
  - Foot fracture [Unknown]
  - Hand fracture [Unknown]
  - Tooth extraction [Unknown]
  - Tooth extraction [Unknown]
  - Hypercholesterolaemia [Unknown]
  - Hypertension [Unknown]
  - Colitis [Unknown]
  - Haemorrhoids [Unknown]
  - Hot flush [Unknown]
  - Depression [Unknown]
  - Hypertonic bladder [Unknown]
  - Nocturia [Unknown]
  - Dyspnoea [Unknown]
  - Choking [Unknown]
  - Anxiety [Unknown]
  - Large intestine polyp [Unknown]
  - Abscess oral [Unknown]
  - Cellulitis [Unknown]
  - Musculoskeletal stiffness [Not Recovered/Not Resolved]
  - Fatigue [Unknown]
  - Diabetes mellitus [Unknown]
  - Dyshidrotic eczema [Unknown]
  - Hyperthyroidism [Unknown]
  - Bradycardia [Unknown]
  - Vaginal infection [Unknown]
  - Spider vein [Unknown]
  - Joint injury [Unknown]
  - Lipoma [Unknown]
  - Acrochordon [Unknown]
  - Lichen planus [Unknown]
  - Nodule [Unknown]
  - Dyspnoea exertional [Unknown]
  - Weight decreased [Unknown]
  - Hypertrophy [Unknown]
  - Lip dry [Unknown]
  - Autoimmune thyroiditis [Unknown]
  - Thyroiditis [Unknown]
  - Hypomagnesaemia [Unknown]
  - Excoriation [Unknown]
  - Dental implantation [Unknown]
  - Hypothyroidism [Unknown]
  - Blood magnesium decreased [Unknown]
  - Parathyroid tumour benign [Unknown]
  - Malaise [Unknown]
  - Musculoskeletal pain [Unknown]
  - Musculoskeletal pain [Unknown]
  - Diarrhoea [Unknown]
  - Myalgia [Unknown]
  - Arthralgia [Unknown]
  - Hypophosphataemia [Unknown]
  - Flatulence [Unknown]
  - Abdominal discomfort [Unknown]
  - Gastrooesophageal reflux disease [Unknown]
  - Constipation [Unknown]
  - Pruritus [Unknown]
  - Pruritus [Unknown]
